APPROVED DRUG PRODUCT: CEPHALOTHIN SODIUM
Active Ingredient: CEPHALOTHIN SODIUM
Strength: EQ 2GM BASE/VIAL
Dosage Form/Route: INJECTABLE;INJECTION
Application: A062464 | Product #002
Applicant: BRISTOL LABORATORIES INC DIV BRISTOL MYERS CO
Approved: May 7, 1984 | RLD: No | RS: No | Type: DISCN